FAERS Safety Report 4327818-8 (Version None)
Quarter: 2004Q1

REPORT INFORMATION
  Report Type: 
  Country: None (occurrence: None)
  Receive Date: 20040331
  Receipt Date: 20040325
  Transmission Date: 20041129
  Serious: Yes (Other)
  Sender: FDA-Public Use
  Company Number: MX-BRISTOL-MYERS SQUIBB COMPANY-12543278

PATIENT
  Age: 56 Year
  Sex: Male

DRUGS (3)
  1. TEQUIN [Suspect]
     Indication: PNEUMONIA
     Route: 042
     Dates: start: 20031101, end: 20031103
  2. BI-EUGLUCON [Concomitant]
     Route: 048
  3. PANTOPRAZOLE [Concomitant]
     Route: 042

REACTIONS (1)
  - HYPOGLYCAEMIA [None]
